FAERS Safety Report 18107530 (Version 7)
Quarter: 2022Q2

REPORT INFORMATION
  Report Type: Other
  Country: US (occurrence: None)
  Receive Date: 20200804
  Receipt Date: 20220601
  Transmission Date: 20220720
  Serious: Yes (Other)
  Sender: FDA-Public Use
  Company Number: US-ROCHE-2650694

PATIENT
  Age: 28 Year
  Sex: Female
  Weight: 99.426 kg

DRUGS (26)
  1. OCREVUS [Suspect]
     Active Substance: OCRELIZUMAB
     Indication: Multiple sclerosis
     Dosage: INFUSE 300MG DAY1, INFUSE 300MG DAY 15 AND 600 MG EVERY 6 MONTHS
     Route: 042
     Dates: start: 20190722
  2. OCREVUS [Suspect]
     Active Substance: OCRELIZUMAB
     Indication: Relapsing-remitting multiple sclerosis
     Route: 042
     Dates: start: 201908
  3. OCREVUS [Suspect]
     Active Substance: OCRELIZUMAB
     Route: 042
     Dates: start: 201906
  4. OCREVUS [Suspect]
     Active Substance: OCRELIZUMAB
     Dosage: INFUSION
     Route: 042
     Dates: start: 201902, end: 20210217
  5. ACYCLOVIR [Suspect]
     Active Substance: ACYCLOVIR
     Indication: Oral herpes
     Route: 065
     Dates: start: 201911
  6. VALACYCLOVIR HYDROCHLORIDE [Suspect]
     Active Substance: VALACYCLOVIR HYDROCHLORIDE
     Indication: Oral herpes
     Dosage: TAKE FOR 7 DAYS WHEN HAVING COLD SORES
     Route: 048
     Dates: start: 20201113
  7. TERIFLUNOMIDE [Suspect]
     Active Substance: TERIFLUNOMIDE
     Indication: Product used for unknown indication
     Route: 065
  8. ALPRAZOLAM [Concomitant]
     Active Substance: ALPRAZOLAM
     Indication: Anxiety
     Dosage: ONGOING: YES (PT TAKE HALF A PILL OR A FULL 1 MG PILL AS NEEDED )
     Route: 048
  9. ALPRAZOLAM [Concomitant]
     Active Substance: ALPRAZOLAM
     Indication: Depression
  10. ALPRAZOLAM [Concomitant]
     Active Substance: ALPRAZOLAM
     Indication: Anxiety
     Dosage: TAKES 0.5-1 MG PRN
     Route: 048
  11. ALPRAZOLAM [Concomitant]
     Active Substance: ALPRAZOLAM
     Indication: Depression
  12. ALBUTEROL [Concomitant]
     Active Substance: ALBUTEROL
     Indication: Asthma
     Dosage: Q4-6 HOURS PRN
     Route: 055
     Dates: start: 2018
  13. ALBUTEROL [Concomitant]
     Active Substance: ALBUTEROL
     Indication: Dyspnoea
  14. CLONIDINE [Concomitant]
     Active Substance: CLONIDINE
     Indication: Hypertension
     Dosage: TAKE ONLY IF BLOOD PRESSURE HIGH
     Route: 048
     Dates: start: 20200924
  15. FLOVENT [Concomitant]
     Active Substance: FLUTICASONE PROPIONATE
     Indication: Asthma
     Dosage: 2 PUFFS BID
     Route: 055
     Dates: start: 2018
  16. FLOVENT [Concomitant]
     Active Substance: FLUTICASONE PROPIONATE
     Dosage: 2 PUFFS TWICE DAILY
  17. BUDESONIDE [Concomitant]
     Active Substance: BUDESONIDE
     Indication: Asthma
     Dosage: 1 PUFF EVERY EACH NOSTRIL MORNING AND NIGHT, NASAL SPRAY
     Route: 055
     Dates: start: 2018
  18. BUDESONIDE [Concomitant]
     Active Substance: BUDESONIDE
     Indication: Hypersensitivity
  19. ONDANSETRON [Concomitant]
     Active Substance: ONDANSETRON
     Indication: Nausea
     Dosage: PRN
     Route: 048
     Dates: start: 201808
  20. BENADRYL [Concomitant]
     Active Substance: DIPHENHYDRAMINE HYDROCHLORIDE
     Dosage: GIVEN BEFORE OCREVUS INFUSION
     Route: 048
  21. BENADRYL [Concomitant]
     Active Substance: DIPHENHYDRAMINE HYDROCHLORIDE
     Dosage: GIVEN BEFORE OCREVUS INFUSION
     Route: 042
  22. FAMOTIDINE [Concomitant]
     Active Substance: FAMOTIDINE
     Indication: Hypersensitivity
     Route: 048
  23. FOLIC ACID [Concomitant]
     Active Substance: FOLIC ACID
     Route: 048
  24. VITAMIN B12 [Concomitant]
     Active Substance: CYANOCOBALAMIN
     Dosage: TAKES HALF OF 5000 MCG; LIQUID DROPS
     Route: 048
  25. OXYGEN [Concomitant]
     Active Substance: OXYGEN
  26. KESIMPTA [Concomitant]
     Active Substance: OFATUMUMAB

REACTIONS (22)
  - Anaphylactic shock [Recovered/Resolved]
  - Multiple sclerosis [Unknown]
  - Fall [Unknown]
  - Dyspnoea [Recovered/Resolved]
  - Vitamin D decreased [Unknown]
  - Folate deficiency [Unknown]
  - Vitamin B12 deficiency [Unknown]
  - Rash [Recovering/Resolving]
  - Blood pressure increased [Recovered/Resolved]
  - Oral herpes [Recovered/Resolved]
  - Nausea [Unknown]
  - Drug ineffective [Unknown]
  - Respiratory arrest [Recovered/Resolved with Sequelae]
  - Pharyngeal swelling [Recovered/Resolved]
  - Body temperature abnormal [Unknown]
  - Throat irritation [Unknown]
  - Throat tightness [Unknown]
  - Asthma [Not Recovered/Not Resolved]
  - Blood iron decreased [Unknown]
  - CD19 lymphocytes decreased [Unknown]
  - Balance disorder [Not Recovered/Not Resolved]
  - Lip discolouration [Unknown]

NARRATIVE: CASE EVENT DATE: 20190201
